FAERS Safety Report 4574028-5 (Version None)
Quarter: 2005Q1

REPORT INFORMATION
  Report Type: 
  Country: None (occurrence: None)
  Receive Date: 20050204
  Receipt Date: 20050121
  Transmission Date: 20050727
  Serious: Yes (Hospitalization, Other)
  Sender: FDA-Public Use
  Company Number: 2005003147

PATIENT
  Age: 33 Year
  Sex: Female
  Weight: 68.0396 kg

DRUGS (1)
  1. RELPAX [Suspect]
     Indication: HEADACHE
     Dosage: 40 MG, ORAL
     Route: 048
     Dates: start: 20040505, end: 20040101

REACTIONS (12)
  - BLOOD GLUCOSE INCREASED [None]
  - BLOOD POTASSIUM DECREASED [None]
  - HYPERREFLEXIA [None]
  - LOSS OF CONSCIOUSNESS [None]
  - MIGRAINE [None]
  - PERIPHERAL PARALYSIS [None]
  - SENSORY LOSS [None]
  - SOMNOLENCE [None]
  - SPEECH DISORDER [None]
  - SYNCOPE [None]
  - VASOSPASM [None]
  - VISION BLURRED [None]
